FAERS Safety Report 5684039-4 (Version None)
Quarter: 2008Q1

REPORT INFORMATION
  Report Type: 
  Country: None (occurrence: None)
  Receive Date: 20080328
  Receipt Date: 20080319
  Transmission Date: 20080703
  Serious: Yes (Other)
  Sender: FDA-Public Use
  Company Number: US-JNJFOC-20080305872

PATIENT
  Sex: Female
  Weight: 77.11 kg

DRUGS (5)
  1. FENTANYL TRANSDERMAL SYSTEM [Suspect]
     Indication: ARACHNOIDITIS
     Route: 062
  2. ARTHROTEC [Concomitant]
     Indication: FIBROMYALGIA
     Route: 048
  3. PROZAC [Concomitant]
     Indication: FIBROMYALGIA
     Route: 048
  4. VALTREX [Concomitant]
     Indication: HERPES ZOSTER
     Route: 048
  5. ASPIRIN [Concomitant]
     Route: 048

REACTIONS (5)
  - HYPERCHOLESTEROLAEMIA [None]
  - HYPERTENSION [None]
  - NAUSEA [None]
  - PAIN [None]
  - WRONG TECHNIQUE IN DRUG USAGE PROCESS [None]
